FAERS Safety Report 20127582 (Version 1)
Quarter: 2021Q4

REPORT INFORMATION
  Report Type: Spontaneous
  Country: US (occurrence: None)
  Receive Date: 20211129
  Receipt Date: 20211129
  Transmission Date: 20220303
  Serious: Yes (Other)
  Sender: FDA-Public Use
  Company Number: None

PATIENT
  Age: 15 Year
  Sex: Female
  Weight: 53.6 kg

DRUGS (3)
  1. OXCARBAZEPINE [Suspect]
     Active Substance: OXCARBAZEPINE
     Indication: Seizure
     Dosage: FREQUENCY : TWICE A DAY;?
     Route: 048
     Dates: start: 20170331
  2. ZONISAMIDE [Concomitant]
     Active Substance: ZONISAMIDE
     Dates: start: 20190923
  3. MELATONIN [Concomitant]
     Active Substance: MELATONIN
     Dates: start: 20210302

REACTIONS (1)
  - Seizure [None]

NARRATIVE: CASE EVENT DATE: 20211106
